FAERS Safety Report 7583009-9 (Version None)
Quarter: 2011Q2

REPORT INFORMATION
  Report Type: 
  Country: None (occurrence: None)
  Receive Date: 20110630
  Receipt Date: 20110623
  Transmission Date: 20111010
  Serious: Yes (Hospitalization)
  Sender: FDA-Public Use
  Company Number: FR-JNJFOC-20110512278

PATIENT
  Sex: Female
  Weight: 79 kg

DRUGS (9)
  1. NIZORAL [Suspect]
     Indication: PITUITARY-DEPENDENT CUSHING'S SYNDROME
     Route: 048
     Dates: start: 20100901
  2. ATACAND [Concomitant]
     Indication: HYPERTENSION
     Route: 048
  3. LEVOTHYROXINE SODIUM [Concomitant]
     Route: 065
  4. KETOPROFEN [Concomitant]
     Indication: PAIN
     Route: 065
  5. ATORVASTATIN CALCIUM [Concomitant]
     Indication: HYPERCHOLESTEROLAEMIA
     Route: 048
  6. TRAMADOL HCL [Concomitant]
     Indication: ANALGESIC THERAPY
     Route: 048
  7. POLYETHYLENE GLYCOL [Concomitant]
     Route: 065
  8. ESCITALOPRAM OXALATE [Concomitant]
     Indication: DEPRESSION
     Route: 048
  9. ZOLPIDEM [Concomitant]
     Indication: SLEEP DISORDER THERAPY
     Route: 048

REACTIONS (2)
  - OFF LABEL USE [None]
  - RESPIRATORY FAILURE [None]
